FAERS Safety Report 12921279 (Version 12)
Quarter: 2018Q3

REPORT INFORMATION
  Report Type: Report from Study
  Country: US (occurrence: US)
  Receive Date: 20161107
  Receipt Date: 20180925
  Transmission Date: 20181010
  Serious: Yes (Life-Threatening, Hospitalization)
  Sender: FDA-Public Use
  Company Number: PHHO2016US016015

PATIENT
  Age: 56 Year
  Sex: Male
  Weight: 95.3 kg

DRUGS (7)
  1. ATENOLOL. [Concomitant]
     Active Substance: ATENOLOL
     Indication: HYPERTENSION
     Dosage: 25 MG, QD
     Route: 065
  2. TASIGNA [Suspect]
     Active Substance: NILOTINIB
     Dosage: 150 MG, BID
     Route: 048
     Dates: start: 20161121
  3. ULORIC [Concomitant]
     Active Substance: FEBUXOSTAT
     Indication: GOUT
     Dosage: 80 MG, QD
     Route: 065
  4. PLETAL [Concomitant]
     Active Substance: CILOSTAZOL
     Indication: PERIPHERAL VASCULAR DISORDER
     Dosage: 100 MG, BID
     Route: 065
  5. VOLTAREN [Concomitant]
     Active Substance: DICLOFENAC SODIUM
     Indication: ARTHROPATHY
     Dosage: 50 MG, BID
     Route: 065
  6. BRILINTA [Concomitant]
     Active Substance: TICAGRELOR
     Indication: PROPHYLAXIS
     Dosage: 90 MG, BID
     Route: 065
  7. TASIGNA [Suspect]
     Active Substance: NILOTINIB
     Indication: CHRONIC MYELOID LEUKAEMIA
     Dosage: 150 MG, BID
     Route: 048
     Dates: start: 20141117, end: 20161024

REACTIONS (11)
  - Fall [Recovered/Resolved with Sequelae]
  - Wound dehiscence [Recovered/Resolved with Sequelae]
  - Wound dehiscence [Recovered/Resolved]
  - Peripheral ischaemia [Recovered/Resolved]
  - Cellulitis [Recovered/Resolved]
  - Embolism [Recovered/Resolved]
  - Coronary artery disease [Recovering/Resolving]
  - Peripheral ischaemia [Recovered/Resolved]
  - Wound infection [Recovered/Resolved]
  - Osteomyelitis [Recovered/Resolved]
  - Peripheral ischaemia [Recovered/Resolved]

NARRATIVE: CASE EVENT DATE: 20161028
